FAERS Safety Report 15153432 (Version 2)
Quarter: 2018Q4

REPORT INFORMATION
  Report Type: Report from Study
  Country: US (occurrence: US)
  Receive Date: 20180717
  Receipt Date: 20181121
  Transmission Date: 20190204
  Serious: Yes (Other)
  Sender: FDA-Public Use
  Company Number: US-ROCHE-2153527

PATIENT
  Age: 74 Year
  Sex: Female
  Weight: 58.57 kg

DRUGS (8)
  1. AVASTIN [Suspect]
     Active Substance: BEVACIZUMAB
     Dosage: EVERY OTHER WEEK;ONGOING:NO
     Route: 065
     Dates: start: 201802, end: 20180712
  2. XELODA [Suspect]
     Active Substance: CAPECITABINE
     Dosage: 3 TABLET IN MORNING AND 2 TABLET AT NIGHT;ONGOING:NO
     Route: 048
     Dates: start: 201806, end: 20180712
  3. AVASTIN [Suspect]
     Active Substance: BEVACIZUMAB
     Indication: COLON CANCER
     Route: 065
     Dates: start: 201710, end: 201711
  4. XELODA [Suspect]
     Active Substance: CAPECITABINE
     Indication: COLON CANCER
     Route: 065
     Dates: start: 201710, end: 201712
  5. XELODA [Suspect]
     Active Substance: CAPECITABINE
     Route: 048
     Dates: start: 201708, end: 201711
  6. XELODA [Suspect]
     Active Substance: CAPECITABINE
     Dosage: 3 IN MORNING, 2 IN EVENING,10 DAYS ON, 11 DAYS OFFONGOING: YES
     Route: 065
     Dates: start: 20180621
  7. XELODA [Suspect]
     Active Substance: CAPECITABINE
     Dosage: 3 IN MORNING, 2 IN EVENING, 14 DAYS ON, 7 DAYS OFF
     Route: 065
     Dates: start: 201802, end: 20180620
  8. XELODA [Suspect]
     Active Substance: CAPECITABINE
     Dosage: 3 TABLET IN MORNING AND 2 TABLET AT NIGHT;ONGOING:NO
     Route: 048
     Dates: start: 201802, end: 201806

REACTIONS (7)
  - Nausea [Recovered/Resolved]
  - Skin ulcer [Not Recovered/Not Resolved]
  - Blister [Recovering/Resolving]
  - Ulcer haemorrhage [Not Recovered/Not Resolved]
  - Pain [Not Recovered/Not Resolved]
  - Biliary colic [Recovered/Resolved]
  - Gait disturbance [Not Recovered/Not Resolved]

NARRATIVE: CASE EVENT DATE: 201711
